FAERS Safety Report 10902332 (Version 1)
Quarter: 2015Q1

REPORT INFORMATION
  Report Type: Spontaneous
  Country: US (occurrence: US)
  Receive Date: 20150310
  Receipt Date: 20150310
  Transmission Date: 20150721
  Serious: No
  Sender: FDA-Public Use
  Company Number: US-PFIZER INC-2015080784

PATIENT
  Age: 68 Year
  Sex: Female

DRUGS (1)
  1. ADVIL [Suspect]
     Active Substance: IBUPROFEN
     Indication: PAIN
     Dosage: UNK, 1X/DAY
     Route: 048
     Dates: start: 1999, end: 1999

REACTIONS (1)
  - Musculoskeletal discomfort [Unknown]

NARRATIVE: CASE EVENT DATE: 1999
